FAERS Safety Report 17930750 (Version 5)
Quarter: 2021Q2

REPORT INFORMATION
  Report Type: Report from Study
  Country: US (occurrence: US)
  Receive Date: 20200623
  Receipt Date: 20210518
  Transmission Date: 20210717
  Serious: Yes (Other)
  Sender: FDA-Public Use
  Company Number: NVSC2020US175010

PATIENT
  Sex: Male

DRUGS (1)
  1. ENTRESTO [Suspect]
     Active Substance: SACUBITRIL\VALSARTAN
     Indication: CARDIAC FAILURE
     Dosage: 49.51 MG, BID
     Route: 048
     Dates: start: 20200515

REACTIONS (5)
  - Weight decreased [Unknown]
  - Atrial fibrillation [Unknown]
  - Cardiovascular disorder [Unknown]
  - Blood pressure increased [Unknown]
  - Extrasystoles [Unknown]
